FAERS Safety Report 22896350 (Version 7)
Quarter: 2025Q2

REPORT INFORMATION
  Report Type: Spontaneous
  Country: US (occurrence: US)
  Receive Date: 20230901
  Receipt Date: 20250408
  Transmission Date: 20250717
  Serious: No
  Sender: PFIZER
  Company Number: US-PFIZER INC-PV202300147855

PATIENT
  Age: 66 Year
  Sex: Female
  Weight: 99.773 kg

DRUGS (6)
  1. TIKOSYN [Suspect]
     Active Substance: DOFETILIDE
     Indication: Heart rate abnormal
     Dosage: 500 MG, 2X/DAY
     Dates: start: 2021
  2. TIKOSYN [Suspect]
     Active Substance: DOFETILIDE
     Indication: Atrial fibrillation
  3. ELIQUIS [Concomitant]
     Active Substance: APIXABAN
  4. POTASSIUM [Concomitant]
     Active Substance: POTASSIUM
  5. MAGNESIUM [Concomitant]
     Active Substance: MAGNESIUM
  6. RANOLAZINE [Concomitant]
     Active Substance: RANOLAZINE

REACTIONS (3)
  - Drug hypersensitivity [Not Recovered/Not Resolved]
  - Throat clearing [Unknown]
  - Oxygen saturation decreased [Unknown]
